FAERS Safety Report 6311559-1 (Version None)
Quarter: 2009Q3

REPORT INFORMATION
  Report Type: 
  Country: None (occurrence: None)
  Receive Date: 20090817
  Receipt Date: 20090804
  Transmission Date: 20100115
  Serious: Yes (Other)
  Sender: FDA-Public Use
  Company Number: US-AVENTIS-200916875US

PATIENT
  Age: 17 Year
  Sex: Female

DRUGS (4)
  1. FUROSEMIDE [Suspect]
     Indication: FLUID RETENTION
  2. LIDOCAINE W/ EPINEPHRINE [Suspect]
     Dosage: DOSE: 1.5ML (LIDOCAINE 20MG/ML + 5 MICROG/ML OF EPINEPHRINE)
     Route: 051
  3. FENTANYL [Suspect]
     Dosage: DOSE: UNK
  4. DIGOXIN [Concomitant]
     Dosage: DOSE: UNK

REACTIONS (4)
  - BRADYCARDIA FOETAL [None]
  - DRUG EXPOSURE DURING PREGNANCY [None]
  - HYPOTENSION [None]
  - TACHYCARDIA [None]
